FAERS Safety Report 5086215-0 (Version None)
Quarter: 2006Q3

REPORT INFORMATION
  Report Type: 
  Country: None (occurrence: None)
  Receive Date: 20060818
  Receipt Date: 20060809
  Transmission Date: 20061208
  Serious: Yes (Death)
  Sender: FDA-Public Use
  Company Number: 2006JP002656

PATIENT
  Sex: Female

DRUGS (1)
  1. FUNGUARD (MICAFUNGIN) INJECTION [Suspect]
     Indication: CANDIDIASIS
     Dosage: 1 MG/KG, UNKNOWN/D, IV DRIP
     Route: 041

REACTIONS (1)
  - NEONATAL MULTI-ORGAN FAILURE [None]
